FAERS Safety Report 17579773 (Version 9)
Quarter: 2020Q3

REPORT INFORMATION
  Report Type: Spontaneous
  Country: CA (occurrence: CA)
  Receive Date: 20200325
  Receipt Date: 20200925
  Transmission Date: 20201102
  Serious: Yes (Disabling, Other)
  Sender: FDA-Public Use
  Company Number: CA-JNJFOC-20200327868

PATIENT
  Age: 64 Year
  Sex: Female

DRUGS (71)
  1. ACTEMRA [Suspect]
     Active Substance: TOCILIZUMAB
     Route: 065
  2. METHOTREXATE. [Suspect]
     Active Substance: METHOTREXATE
     Route: 058
  3. ORENCIA [Suspect]
     Active Substance: ABATACEPT
     Indication: RHEUMATOID ARTHRITIS
     Route: 065
  4. PREDNISONE. [Suspect]
     Active Substance: PREDNISONE
     Indication: RHEUMATOID ARTHRITIS
     Route: 065
  5. ARAVA [Suspect]
     Active Substance: LEFLUNOMIDE
     Indication: RHEUMATOID ARTHRITIS
     Route: 048
  6. RISEDRONATE SODIUM. [Suspect]
     Active Substance: RISEDRONATE SODIUM
     Route: 065
  7. RITUXIMAB. [Suspect]
     Active Substance: RITUXIMAB
     Route: 041
  8. VARICELLA ZOSTER VACCINE LIVE (MAV/06) [Concomitant]
  9. STELARA [Suspect]
     Active Substance: USTEKINUMAB
     Indication: PRODUCT USED FOR UNKNOWN INDICATION
     Route: 058
  10. CELEBREX [Suspect]
     Active Substance: CELECOXIB
     Indication: RHEUMATOID ARTHRITIS
     Route: 048
  11. METHOTREXATE. [Suspect]
     Active Substance: METHOTREXATE
     Route: 065
  12. SULFASALAZINE. [Suspect]
     Active Substance: SULFASALAZINE
     Route: 048
  13. HUMIRA [Suspect]
     Active Substance: ADALIMUMAB
     Indication: PRODUCT USED FOR UNKNOWN INDICATION
     Route: 058
  14. RITUXIMAB. [Suspect]
     Active Substance: RITUXIMAB
     Route: 041
  15. DESOXIMETASONE. [Concomitant]
     Active Substance: DESOXIMETASONE
  16. TYLENOL [Concomitant]
     Active Substance: ACETAMINOPHEN
  17. ALLOPURINOL. [Concomitant]
     Active Substance: ALLOPURINOL
     Route: 065
  18. METHOTREXATE. [Suspect]
     Active Substance: METHOTREXATE
     Indication: PRODUCT USED FOR UNKNOWN INDICATION
     Route: 065
  19. METHOTREXATE. [Suspect]
     Active Substance: METHOTREXATE
     Route: 065
  20. APO?LEFLUNOMIDE [Suspect]
     Active Substance: LEFLUNOMIDE
     Indication: RHEUMATOID ARTHRITIS
     Route: 048
  21. PLAQUENIL                          /00072602/ [Suspect]
     Active Substance: HYDROXYCHLOROQUINE DIPHOSPHATE
     Indication: PRODUCT USED FOR UNKNOWN INDICATION
     Route: 065
  22. CYCLOBENZAPRINE. [Concomitant]
     Active Substance: CYCLOBENZAPRINE
  23. CALCIUM [Concomitant]
     Active Substance: CALCIUM
     Indication: RHEUMATOID ARTHRITIS
  24. NAPROXEN. [Concomitant]
     Active Substance: NAPROXEN
  25. VITAMIN D                          /00107901/ [Concomitant]
     Active Substance: ERGOCALCIFEROL
  26. REMICADE [Suspect]
     Active Substance: INFLIXIMAB
     Indication: PRODUCT USED FOR UNKNOWN INDICATION
     Route: 042
  27. ACTONEL [Suspect]
     Active Substance: RISEDRONATE SODIUM
     Route: 065
  28. CELEBREX [Suspect]
     Active Substance: CELECOXIB
     Indication: ARTHRITIS
     Route: 048
  29. ENBREL [Suspect]
     Active Substance: ETANERCEPT
     Indication: RHEUMATOID ARTHRITIS
     Dosage: 3.0 MONTHS
     Route: 058
  30. PREDNISOLONE. [Suspect]
     Active Substance: PREDNISOLONE
     Indication: RHEUMATOID ARTHRITIS
     Route: 065
  31. LEFLUNOMIDE. [Suspect]
     Active Substance: LEFLUNOMIDE
     Indication: RHEUMATOID ARTHRITIS
     Route: 048
  32. RISEDRONATE SODIUM. [Suspect]
     Active Substance: RISEDRONATE SODIUM
     Indication: RHEUMATOID ARTHRITIS
     Route: 065
  33. RITUXIMAB. [Suspect]
     Active Substance: RITUXIMAB
     Indication: PRODUCT USED FOR UNKNOWN INDICATION
     Route: 042
  34. PREDNISONE ACETATE [Concomitant]
     Active Substance: PREDNISONE ACETATE
  35. CIMZIA [Suspect]
     Active Substance: CERTOLIZUMAB PEGOL
     Indication: RHEUMATOID ARTHRITIS
     Route: 058
  36. CIMZIA [Suspect]
     Active Substance: CERTOLIZUMAB PEGOL
     Route: 058
  37. METHOTREXATE. [Suspect]
     Active Substance: METHOTREXATE
     Indication: RHEUMATOID ARTHRITIS
     Route: 058
  38. MINOCYCLINE HYDROCHLORIDE. [Suspect]
     Active Substance: MINOCYCLINE HYDROCHLORIDE
     Indication: PRODUCT USED FOR UNKNOWN INDICATION
     Route: 065
  39. SIRUKUMAB [Suspect]
     Active Substance: SIRUKUMAB
     Indication: PRODUCT USED FOR UNKNOWN INDICATION
     Route: 065
  40. MINOCYCLINE [Suspect]
     Active Substance: MINOCYCLINE HYDROCHLORIDE
     Indication: PRODUCT USED FOR UNKNOWN INDICATION
     Route: 065
  41. AMLODIPINE [Concomitant]
     Active Substance: AMLODIPINE BESYLATE
     Route: 065
  42. HYDROCHLOROTHIAZIDE W/OLMESARTAN MEDOXOMIL [Concomitant]
     Active Substance: HYDROCHLOROTHIAZIDE\OLMESARTAN MEDOXOMIL
  43. ERELZI [Concomitant]
     Active Substance: ETANERCEPT-SZZS
  44. ACTEMRA [Suspect]
     Active Substance: TOCILIZUMAB
     Indication: RHEUMATOID ARTHRITIS
     Route: 065
  45. METHOTREXATE. [Suspect]
     Active Substance: METHOTREXATE
     Route: 065
  46. METHOTREXATE. [Suspect]
     Active Substance: METHOTREXATE
     Route: 058
  47. PROLIA [Suspect]
     Active Substance: DENOSUMAB
     Route: 058
  48. XELJANZ [Suspect]
     Active Substance: TOFACITINIB CITRATE
     Indication: RHEUMATOID ARTHRITIS
     Route: 048
  49. HYDROXYCHLOROQUINE [Concomitant]
     Active Substance: HYDROXYCHLOROQUINE
  50. PROLIA [Concomitant]
     Active Substance: DENOSUMAB
     Indication: PRODUCT USED FOR UNKNOWN INDICATION
     Route: 058
  51. SIMPONI [Suspect]
     Active Substance: GOLIMUMAB
     Indication: RHEUMATOID ARTHRITIS
     Route: 058
  52. METHOTREXATE. [Suspect]
     Active Substance: METHOTREXATE
     Route: 048
  53. PREDNISONE. [Suspect]
     Active Substance: PREDNISONE
     Route: 065
  54. SULFASALAZINE. [Suspect]
     Active Substance: SULFASALAZINE
     Route: 065
  55. MINIMS PREDNISOLONE SODIUM PHOSPHATE [Suspect]
     Active Substance: PREDNISOLONE SODIUM PHOSPHATE
     Indication: RHEUMATOID ARTHRITIS
     Dosage: 0.5%
     Route: 047
  56. HYDROXYCHLOROQUINE [Suspect]
     Active Substance: HYDROXYCHLOROQUINE
     Indication: PRODUCT USED FOR UNKNOWN INDICATION
     Route: 065
  57. RISEDRONATE SODIUM. [Suspect]
     Active Substance: RISEDRONATE SODIUM
     Route: 048
  58. AZATHIOPRINE. [Suspect]
     Active Substance: AZATHIOPRINE
     Indication: PRODUCT USED FOR UNKNOWN INDICATION
     Route: 065
  59. HYDROXYCHLOROQUINE SULFATE. [Suspect]
     Active Substance: HYDROXYCHLOROQUINE SULFATE
     Indication: PRODUCT USED FOR UNKNOWN INDICATION
     Route: 065
  60. METHOTREXATE. [Concomitant]
     Active Substance: METHOTREXATE
  61. MAGNESIUM [Concomitant]
     Active Substance: MAGNESIUM
  62. ACTONEL [Suspect]
     Active Substance: RISEDRONATE SODIUM
     Indication: RHEUMATOID ARTHRITIS
     Route: 065
  63. ENBREL [Suspect]
     Active Substance: ETANERCEPT
     Route: 065
  64. METHOTREXATE. [Suspect]
     Active Substance: METHOTREXATE
     Route: 048
  65. PROLIA [Suspect]
     Active Substance: DENOSUMAB
     Indication: RHEUMATOID ARTHRITIS
     Route: 058
  66. SULFASALAZINE. [Suspect]
     Active Substance: SULFASALAZINE
     Indication: RHEUMATOID ARTHRITIS
     Route: 048
  67. ARAVA [Suspect]
     Active Substance: LEFLUNOMIDE
     Route: 048
  68. ARAVA [Suspect]
     Active Substance: LEFLUNOMIDE
     Route: 065
  69. OTEZLA [Suspect]
     Active Substance: APREMILAST
     Indication: PRODUCT USED FOR UNKNOWN INDICATION
     Route: 065
  70. XELJANZ [Concomitant]
     Active Substance: TOFACITINIB CITRATE
     Indication: RHEUMATOID ARTHRITIS
     Route: 048
  71. LEFLUNOMIDE. [Concomitant]
     Active Substance: LEFLUNOMIDE
     Indication: PRODUCT USED FOR UNKNOWN INDICATION
     Route: 065

REACTIONS (33)
  - Joint dislocation [Unknown]
  - Joint stiffness [Unknown]
  - Osteoarthritis [Unknown]
  - Drug ineffective [Unknown]
  - Skin disorder [Unknown]
  - Osteoporosis [Unknown]
  - Arthralgia [Unknown]
  - Fracture [Unknown]
  - Immobile [Unknown]
  - Off label use [Unknown]
  - Pain [Unknown]
  - Mobility decreased [Unknown]
  - Contraindicated product administered [Unknown]
  - Treatment failure [Unknown]
  - Lower limb fracture [Unknown]
  - Foot fracture [Unknown]
  - Hepatitis [Unknown]
  - Arthritis [Unknown]
  - Myocardial infarction [Unknown]
  - Bone erosion [Unknown]
  - Adverse drug reaction [Unknown]
  - Exostosis [Unknown]
  - Foot deformity [Unknown]
  - Bedridden [Unknown]
  - Loss of personal independence in daily activities [Unknown]
  - General physical health deterioration [Unknown]
  - Condition aggravated [Unknown]
  - Therapeutic product effect incomplete [Unknown]
  - Anaphylactic shock [Unknown]
  - Fibromyalgia [Unknown]
  - Rheumatoid arthritis [Unknown]
  - Synovitis [Unknown]
  - Red blood cell sedimentation rate increased [Unknown]
